FAERS Safety Report 8405817-4 (Version None)
Quarter: 2012Q2

REPORT INFORMATION
  Report Type: 
  Country: None (occurrence: None)
  Receive Date: 20120604
  Receipt Date: 20120530
  Transmission Date: 20120825
  Serious: No
  Sender: FDA-Public Use
  Company Number: US-PFIZER INC-2012130759

PATIENT
  Sex: Female
  Weight: 59.864 kg

DRUGS (4)
  1. MELATONIN [Suspect]
     Indication: SUPPLEMENTATION THERAPY
     Dosage: UNK
  2. EFFEXOR XR [Suspect]
     Indication: ANXIETY
     Dosage: UNK
     Route: 048
  3. EFFEXOR XR [Suspect]
     Dosage: 37.5 MG, UNK
     Route: 048
     Dates: start: 20120527, end: 20120527
  4. BORON [Suspect]
     Indication: SUPPLEMENTATION THERAPY
     Dosage: UNK

REACTIONS (6)
  - DIZZINESS [None]
  - FEELING ABNORMAL [None]
  - CIRCADIAN RHYTHM SLEEP DISORDER [None]
  - PANIC ATTACK [None]
  - ANXIETY [None]
  - INSOMNIA [None]
